FAERS Safety Report 7215052-3 (Version None)
Quarter: 2011Q1

REPORT INFORMATION
  Report Type: 
  Country: None (occurrence: None)
  Receive Date: 20110107
  Receipt Date: 20100727
  Transmission Date: 20110831
  Serious: No
  Sender: FDA-Public Use
  Company Number: A0872533A

PATIENT
  Age: 64 Year
  Sex: Female

DRUGS (8)
  1. LOVAZA [Suspect]
     Route: 048
     Dates: start: 20060101
  2. ALTACE [Concomitant]
  3. GUAIFENESIN [Concomitant]
  4. PROPOXYPHENE [Concomitant]
  5. LANTUS [Concomitant]
  6. INDAPAMIDE [Concomitant]
  7. SUMALIN [Concomitant]
  8. SYNTHROID [Concomitant]

REACTIONS (1)
  - DYSGEUSIA [None]
